FAERS Safety Report 7572726-2 (Version None)
Quarter: 2011Q2

REPORT INFORMATION
  Report Type: 
  Country: None (occurrence: None)
  Receive Date: 20110525
  Receipt Date: 20110318
  Transmission Date: 20111010
  Serious: No
  Sender: FDA-Public Use
  Company Number: 325444

PATIENT

DRUGS (2)
  1. ACETAMINOPHEN [Concomitant]
  2. VICTOZA [Suspect]
     Indication: PRODUCT USED FOR UNKNOWN INDICATION
     Dosage: SUBCUTANEOUS
     Route: 058

REACTIONS (2)
  - HEPATIC ENZYME ABNORMAL [None]
  - PAIN [None]
